FAERS Safety Report 6189826-4 (Version None)
Quarter: 2009Q2

REPORT INFORMATION
  Report Type: 
  Country: None (occurrence: None)
  Receive Date: 20090514
  Receipt Date: 20090504
  Transmission Date: 20091009
  Serious: Yes (Hospitalization, Other)
  Sender: FDA-Public Use
  Company Number: US-BAYER-200917284NA

PATIENT
  Age: 59 Year
  Sex: Male
  Weight: 98 kg

DRUGS (4)
  1. AVELOX [Suspect]
     Indication: BRONCHITIS
     Dosage: TOTAL DAILY DOSE: 400 MG  UNIT DOSE: 400 MG
     Dates: start: 20090226
  2. EXFORGE [Concomitant]
  3. PENTOXIFYLLINE [Concomitant]
  4. ASPIRIN [Concomitant]
     Dosage: UNIT DOSE: 81 MG

REACTIONS (23)
  - ABDOMINAL PAIN [None]
  - ABNORMAL DREAMS [None]
  - ASTHENIA [None]
  - BLISTER [None]
  - CHILLS [None]
  - CHROMATURIA [None]
  - DIARRHOEA [None]
  - DYSPNOEA [None]
  - FATIGUE [None]
  - HEPATIC ENZYME INCREASED [None]
  - INSOMNIA [None]
  - MALAISE [None]
  - MENTAL STATUS CHANGES [None]
  - OCULAR ICTERUS [None]
  - PANCREATIC ENZYMES INCREASED [None]
  - PANCREATITIS [None]
  - PARAESTHESIA [None]
  - PYREXIA [None]
  - SKIN EXFOLIATION [None]
  - TENDON PAIN [None]
  - URINARY TRACT INFECTION [None]
  - VISUAL IMPAIRMENT [None]
  - YELLOW SKIN [None]
